FAERS Safety Report 7929460-6 (Version None)
Quarter: 2011Q4

REPORT INFORMATION
  Report Type: 
  Country: None (occurrence: None)
  Receive Date: 20111121
  Receipt Date: 20111109
  Transmission Date: 20120403
  Serious: No
  Sender: FDA-Public Use
  Company Number: US-BIOGENIDEC-2011BI042962

PATIENT
  Sex: Female

DRUGS (3)
  1. AVONEX [Suspect]
     Route: 030
  2. AVONEX [Suspect]
     Indication: MULTIPLE SCLEROSIS
     Route: 030
     Dates: start: 20080402
  3. WELLBUTRIN [Concomitant]
     Indication: DEPRESSION

REACTIONS (7)
  - FLUSHING [None]
  - INFLUENZA LIKE ILLNESS [None]
  - DEPRESSION [None]
  - PRURITUS [None]
  - HYPERTENSION [None]
  - URTICARIA [None]
  - HEADACHE [None]
